FAERS Safety Report 6382659-5 (Version None)
Quarter: 2009Q3

REPORT INFORMATION
  Report Type: 
  Country: None (occurrence: None)
  Receive Date: 20090930
  Receipt Date: 20090921
  Transmission Date: 20100115
  Serious: Yes (Death)
  Sender: FDA-Public Use
  Company Number: DE-JNJFOC-20090802351

PATIENT
  Age: 71 Year
  Sex: Male

DRUGS (2)
  1. UNSPECIFIED IBUPROFEN PRODUCT [Suspect]
     Indication: ARTHRALGIA
     Dosage: 4 WEEKS PRIOR TO DEATH
     Route: 048
  2. GINGIUM [Interacting]
     Indication: DIZZINESS
     Dosage: ^FOR AT LEAST 2 YRS + 6 MOS^
     Route: 065

REACTIONS (3)
  - CEREBRAL HAEMORRHAGE [None]
  - DEATH [None]
  - DRUG INTERACTION [None]
